FAERS Safety Report 8775079 (Version 2)
Quarter: 2013Q4

REPORT INFORMATION
  Report Type: Spontaneous
  Country: US (occurrence: US)
  Receive Date: 20120910
  Receipt Date: 20131101
  Transmission Date: 20140711
  Serious: No
  Sender: FDA-Public Use
  Company Number: US-009507513-1209USA001409

PATIENT
  Age: 63 Year
  Sex: Female

DRUGS (2)
  1. FOSAMAX [Suspect]
     Indication: OSTEOPENIA
     Dosage: 70 MG, QW
     Route: 048
     Dates: start: 200303
  2. VAGIFEM [Concomitant]

REACTIONS (3)
  - Pain in jaw [Unknown]
  - Gingival pain [Unknown]
  - Sensitivity of teeth [Unknown]
